FAERS Safety Report 5081848-X (Version None)
Quarter: 2006Q3

REPORT INFORMATION
  Report Type: 
  Country: None (occurrence: None)
  Receive Date: 20060816
  Receipt Date: 20060808
  Transmission Date: 20061208
  Serious: Yes (Life-Threatening)
  Sender: FDA-Public Use
  Company Number: NL-JNJFOC-20060801895

PATIENT
  Age: 30 Year
  Sex: Female
  Weight: 68 kg

DRUGS (1)
  1. REMICADE [Suspect]
     Indication: PYODERMA GANGRENOSUM
     Route: 042

REACTIONS (7)
  - ARRHYTHMIA [None]
  - ARTHRALGIA [None]
  - DYSPNOEA [None]
  - INFUSION RELATED REACTION [None]
  - JOINT SWELLING [None]
  - MYALGIA [None]
  - SKIN REACTION [None]
